FAERS Safety Report 24764772 (Version 2)
Quarter: 2024Q4

REPORT INFORMATION
  Report Type: Spontaneous
  Country: JP (occurrence: JP)
  Receive Date: 20241223
  Receipt Date: 20241227
  Transmission Date: 20250115
  Serious: Yes (Death, Life-Threatening, Hospitalization)
  Sender: STRIDES
  Company Number: None

PATIENT
  Age: 64 Year
  Sex: Male

DRUGS (19)
  1. PREDNISOLONE [Suspect]
     Active Substance: PREDNISOLONE
     Indication: Dermatomyositis
     Dosage: 125 MILLIGRAM (HIGH-DOSE GLUCOCORTICOIDS)
     Route: 065
  2. PREDNISOLONE [Suspect]
     Active Substance: PREDNISOLONE
     Indication: Interstitial lung disease
     Dosage: 80 MILLIGRAM (HIGH-DOSE GLUCOCORTICOIDS)
     Route: 065
  3. PREDNISOLONE [Suspect]
     Active Substance: PREDNISOLONE
     Indication: Anti-melanoma differentiation-associated protein 5 antibody positive
     Dosage: 60 MILLIGRAM (HIGH-DOSE GLUCOCORTICOIDS)
     Route: 065
  4. PREDNISOLONE [Suspect]
     Active Substance: PREDNISOLONE
     Dosage: 125 MILLIGRAM (DOSE INCREASED)
     Route: 065
  5. PREDNISOLONE [Suspect]
     Active Substance: PREDNISOLONE
     Dosage: 80 MILLIGRAM (DOSE DECREASED)
     Route: 065
  6. TACROLIMUS [Suspect]
     Active Substance: TACROLIMUS
     Indication: Anti-melanoma differentiation-associated protein 5 antibody positive
     Dosage: 4 MILLIGRAM
     Route: 065
  7. TACROLIMUS [Suspect]
     Active Substance: TACROLIMUS
     Indication: Dermatomyositis
     Dosage: 6 MILLIGRAM (INCREASED DOSE)
     Route: 065
  8. TACROLIMUS [Suspect]
     Active Substance: TACROLIMUS
     Indication: Interstitial lung disease
     Dosage: 10 MILLIGRAM (INCREASED DOSE)
     Route: 065
  9. TACROLIMUS [Suspect]
     Active Substance: TACROLIMUS
     Dosage: 12 MILLIGRAM (DOSE FURTHER INCREASED)
     Route: 065
  10. TACROLIMUS [Suspect]
     Active Substance: TACROLIMUS
     Dosage: 6 MILLIGRAM (DOSE DECREASED)
     Route: 065
  11. TACROLIMUS [Suspect]
     Active Substance: TACROLIMUS
     Dosage: 12 MILLIGRAM (DOSE INCREASED)
     Route: 065
  12. METHYLPREDNISOLONE [Suspect]
     Active Substance: METHYLPREDNISOLONE
     Indication: Anti-melanoma differentiation-associated protein 5 antibody positive
     Dosage: 1000 MILLIGRAM, SINGLE (SINGLE DOSE)
     Route: 065
  13. METHYLPREDNISOLONE [Suspect]
     Active Substance: METHYLPREDNISOLONE
     Indication: Dermatomyositis
     Dosage: 500 MILLIGRAM, SINGLE (SINGLE DOSE)
     Route: 065
  14. METHYLPREDNISOLONE [Suspect]
     Active Substance: METHYLPREDNISOLONE
     Indication: Interstitial lung disease
  15. METHYLPREDNISOLONE [Suspect]
     Active Substance: METHYLPREDNISOLONE
     Indication: Interstitial lung disease
  16. CYCLOPHOSPHAMIDE [Suspect]
     Active Substance: CYCLOPHOSPHAMIDE
     Indication: Anti-melanoma differentiation-associated protein 5 antibody positive
     Dosage: 500 MILLIGRAM/SQ. METER
     Route: 042
  17. CYCLOPHOSPHAMIDE [Suspect]
     Active Substance: CYCLOPHOSPHAMIDE
     Indication: Dermatomyositis
  18. CYCLOPHOSPHAMIDE [Suspect]
     Active Substance: CYCLOPHOSPHAMIDE
     Indication: Interstitial lung disease
  19. CEFTRIAXONE SODIUM [Concomitant]
     Active Substance: CEFTRIAXONE SODIUM
     Indication: Antibiotic prophylaxis
     Dosage: UNK
     Route: 065

REACTIONS (11)
  - Diffuse alveolar damage [Fatal]
  - Respiratory failure [Fatal]
  - Interstitial lung disease [Fatal]
  - Pneumonia bacterial [Fatal]
  - Therapy non-responder [Fatal]
  - Condition aggravated [Fatal]
  - Subcutaneous emphysema [Not Recovered/Not Resolved]
  - Pneumothorax [Unknown]
  - Pneumomediastinum [Unknown]
  - Hypotension [Unknown]
  - Off label use [Unknown]
